FAERS Safety Report 10265044 (Version 1)
Quarter: 2014Q2

REPORT INFORMATION
  Report Type: Spontaneous
  Country: US (occurrence: None)
  Receive Date: 20140625
  Receipt Date: 20140625
  Transmission Date: 20141212
  Serious: No
  Sender: FDA-Public Use
  Company Number: None

PATIENT
  Age: 20 Year
  Sex: Female
  Weight: 50.8 kg

DRUGS (1)
  1. LACTATED RINGERS [Suspect]
     Indication: ANAESTHESIA PROCEDURE
     Route: 042
     Dates: start: 20130711

REACTIONS (7)
  - Vomiting [None]
  - Nausea [None]
  - Paraesthesia [None]
  - Hypoaesthesia [None]
  - Pallor [None]
  - Hyperhidrosis [None]
  - Erythema [None]
